FAERS Safety Report 8996625 (Version 1)
Quarter: 2013Q1

REPORT INFORMATION
  Report Type: Spontaneous
  Country: US (occurrence: US)
  Receive Date: 20130104
  Receipt Date: 20130104
  Transmission Date: 20140127
  Serious: Yes (Other)
  Sender: FDA-Public Use
  Company Number: US-PFIZER INC-2013002775

PATIENT
  Age: 48 Year
  Sex: Female
  Weight: 52.15 kg

DRUGS (1)
  1. CELEBREX [Suspect]
     Indication: PAIN IN EXTREMITY
     Dosage: 200 MG, 1X/DAY
     Route: 048
     Dates: start: 2010, end: 201212

REACTIONS (1)
  - Allergic respiratory disease [Unknown]
